FAERS Safety Report 7211073-5 (Version None)
Quarter: 2011Q1

REPORT INFORMATION
  Report Type: 
  Country: None (occurrence: None)
  Receive Date: 20110105
  Receipt Date: 20101227
  Transmission Date: 20110831
  Serious: Yes (Death, Hospitalization)
  Sender: FDA-Public Use
  Company Number: BE-GENZYME-CLOF-1001305

PATIENT
  Sex: Male
  Weight: 62 kg

DRUGS (3)
  1. EVOLTRA [Suspect]
     Indication: ACUTE MYELOID LEUKAEMIA
     Dosage: 26.85 MG, QDX5
     Route: 042
     Dates: start: 20101006, end: 20101010
  2. AMSACRINE [Suspect]
     Indication: ACUTE MYELOID LEUKAEMIA
     Dosage: 215 MG, QD
     Route: 042
     Dates: start: 20101009, end: 20101011
  3. CYTARABINE [Suspect]
     Indication: ACUTE MYELOID LEUKAEMIA
     Dosage: 3580 MG, QD
     Route: 042
     Dates: start: 20101006, end: 20101011

REACTIONS (3)
  - INTESTINAL OBSTRUCTION [None]
  - PULMONARY EMBOLISM [None]
  - PULMONARY HAEMORRHAGE [None]
